FAERS Safety Report 10616621 (Version 1)
Quarter: 2014Q4

REPORT INFORMATION
  Report Type: Spontaneous
  Country: US (occurrence: None)
  Receive Date: 20141126
  Receipt Date: 20141126
  Transmission Date: 20150529
  Serious: Yes (Hospitalization, Disabling, Other)
  Sender: FDA-Public Use
  Company Number: None

PATIENT
  Age: 76 Year
  Sex: Female
  Weight: 66.23 kg

DRUGS (1)
  1. ONFI [Suspect]
     Active Substance: CLOBAZAM
     Indication: PRODUCT USED FOR UNKNOWN INDICATION
     Dosage: TAKE 1 TABLET BY MOUTH 2XDA TWICE DAILY TAKEN BY MOUTH
     Route: 048
     Dates: start: 20140708, end: 20141104

REACTIONS (6)
  - Loss of consciousness [None]
  - Subdural haematoma [None]
  - Fall [None]
  - Headache [None]
  - Complex partial seizures [None]
  - Eye pain [None]

NARRATIVE: CASE EVENT DATE: 20140826
